FAERS Safety Report 9891006 (Version 1)
Quarter: 2014Q1

REPORT INFORMATION
  Report Type: Spontaneous
  Country: US (occurrence: None)
  Receive Date: 20140207
  Receipt Date: 20140207
  Transmission Date: 20141002
  Serious: Yes (Death)
  Sender: FDA-Public Use
  Company Number: SYM-2014-15589

PATIENT
  Age: 50 Year
  Sex: Male

DRUGS (5)
  1. DIAZEPAM [Suspect]
     Indication: PRODUCT USED FOR UNKNOWN INDICATION
     Route: 048
  2. DILTIAZEM [Suspect]
     Indication: ILL-DEFINED DISORDER
     Route: 048
  3. CYCLOBENZAPRINE (CYCLOBENZAPRINE) [Suspect]
     Indication: ILL-DEFINED DISORDER
     Route: 048
  4. HEROIN (DIAMORPHINE) (DIAMORPHINE) [Suspect]
     Indication: ILL-DEFINED DISORDER
     Route: 048
  5. ETHANOL (ETHANOL) [Suspect]
     Indication: ILL-DEFINED DISORDER
     Route: 048

REACTIONS (2)
  - Poisoning [None]
  - Drug abuse [None]
